FAERS Safety Report 15855264 (Version 2)
Quarter: 2019Q1

REPORT INFORMATION
  Report Type: Report from Study
  Country: GB (occurrence: GB)
  Receive Date: 20190122
  Receipt Date: 20190215
  Transmission Date: 20190417
  Serious: Yes (Other)
  Sender: FDA-Public Use
  Company Number: PHHY2019GB010231

PATIENT
  Sex: Female

DRUGS (2)
  1. ERELZI [Suspect]
     Active Substance: ETANERCEPT-SZZS
     Indication: RHEUMATOID ARTHRITIS
     Dosage: 50 MG, QW
     Route: 058
     Dates: start: 201808
  2. ERELZI [Suspect]
     Active Substance: ETANERCEPT-SZZS
     Dosage: 50 MG, QW
     Route: 058
     Dates: start: 20190110

REACTIONS (9)
  - Dyspnoea [Unknown]
  - Quality of life decreased [Unknown]
  - Cardiac disorder [Unknown]
  - Oral herpes [Unknown]
  - Angioedema [Unknown]
  - Pruritus [Unknown]
  - Palpitations [Unknown]
  - Fatigue [Unknown]
  - Mobility decreased [Unknown]
